FAERS Safety Report 7291388-5 (Version None)
Quarter: 2011Q1

REPORT INFORMATION
  Report Type: 
  Country: None (occurrence: None)
  Receive Date: 20110214
  Receipt Date: 20110207
  Transmission Date: 20110831
  Serious: Yes (Other)
  Sender: FDA-Public Use
  Company Number: B0698220A

PATIENT
  Age: 58 Year
  Sex: Male

DRUGS (6)
  1. INSULIN [Concomitant]
     Route: 058
  2. DIGOXIN [Concomitant]
     Route: 048
  3. PAROXETINE [Suspect]
     Indication: DEPRESSION
     Route: 048
     Dates: end: 20110123
  4. MEROPENEM [Concomitant]
     Indication: SEPSIS
     Dosage: 2G PER DAY
     Route: 042
     Dates: end: 20110113
  5. PREDNISOLONE [Concomitant]
     Dosage: 5MG PER DAY
     Route: 048
  6. PROGRAF [Concomitant]
     Route: 048

REACTIONS (2)
  - HALLUCINATION [None]
  - CONFUSIONAL STATE [None]
